FAERS Safety Report 9007420 (Version 3)
Quarter: 2013Q4

REPORT INFORMATION
  Report Type: Report from Study
  Country: US (occurrence: US)
  Receive Date: 20130110
  Receipt Date: 20131226
  Transmission Date: 20140711
  Serious: Yes (Hospitalization, Other)
  Sender: FDA-Public Use
  Company Number: US-CELGENEUS-163-C4047-12121282

PATIENT
  Age: 67 Year
  Sex: Female
  Weight: 60.6 kg

DRUGS (137)
  1. LOMOTIL [Concomitant]
     Dosage: 2.5-0.025MG
     Route: 048
     Dates: start: 20121017
  2. BENTYL [Concomitant]
     Indication: IRRITABLE BOWEL SYNDROME
     Dosage: 10 MILLIGRAM
     Route: 048
     Dates: start: 20070827
  3. BENTYL [Concomitant]
     Dosage: 10 MILLIGRAM
     Route: 048
     Dates: start: 20071105
  4. BENTYL [Concomitant]
     Dosage: 40 MILLIGRAM
     Route: 048
     Dates: start: 20110711
  5. BENTYL [Concomitant]
     Dosage: 40 MILLIGRAM
     Route: 048
     Dates: start: 20121010
  6. BENTYL [Concomitant]
     Dosage: 40 MILLIGRAM
     Route: 048
     Dates: start: 20121017
  7. CYCLOBENZAPRINE [Concomitant]
     Indication: MUSCLE SPASMS
     Dosage: 30 MILLIGRAM
     Route: 048
     Dates: start: 20110708
  8. CYCLOBENZAPRINE [Concomitant]
     Dosage: 30 MILLIGRAM
     Route: 048
     Dates: start: 20110711
  9. CYCLOBENZAPRINE [Concomitant]
     Dosage: 30 MILLIGRAM
     Route: 048
     Dates: start: 20121010
  10. ESOMEPRAZOLE [Concomitant]
     Indication: PRODUCT USED FOR UNKNOWN INDICATION
     Dosage: 40 MILLIGRAM
     Route: 048
     Dates: start: 20070827
  11. ESOMEPRAZOLE [Concomitant]
     Dosage: 40 MILLIGRAM
     Route: 048
     Dates: start: 20071105
  12. ESOMEPRAZOLE [Concomitant]
     Dosage: 40 MILLIGRAM
     Route: 048
     Dates: start: 20120918
  13. ESOMEPRAZOLE [Concomitant]
     Dosage: 40 MILLIGRAM
     Route: 048
     Dates: start: 20121010
  14. FLUIDS [Concomitant]
     Indication: PRODUCT USED FOR UNKNOWN INDICATION
     Route: 041
  15. GABAPENTIN [Concomitant]
     Indication: PRODUCT USED FOR UNKNOWN INDICATION
     Dosage: 900 MILLIGRAM
     Route: 048
     Dates: start: 20070309
  16. GABAPENTIN [Concomitant]
     Dosage: 600 MILLIGRAM
     Route: 048
     Dates: start: 20070323
  17. GABAPENTIN [Concomitant]
     Dosage: 900 MILLIGRAM
     Route: 048
     Dates: start: 20070329
  18. GABAPENTIN [Concomitant]
     Dosage: 400 MILLIGRAM
     Route: 048
  19. POLYETHYLENE GLYCOL [Concomitant]
     Indication: CONSTIPATION
     Dosage: 17 GRAM
     Route: 048
     Dates: start: 20121207, end: 20121213
  20. POLYETHYLENE GLYCOL [Concomitant]
     Route: 048
     Dates: start: 20121214
  21. DOCUSATE SODIUM\SENNOSIDES [Concomitant]
     Indication: PRODUCT USED FOR UNKNOWN INDICATION
     Route: 048
     Dates: start: 20070309
  22. DOCUSATE SODIUM\SENNOSIDES [Concomitant]
     Route: 048
     Dates: start: 20070323
  23. DOCUSATE SODIUM\SENNOSIDES [Concomitant]
     Route: 048
     Dates: start: 20070329
  24. DOCUSATE SODIUM\SENNOSIDES [Concomitant]
     Route: 048
     Dates: start: 20070424
  25. DOCUSATE SODIUM\SENNOSIDES [Concomitant]
     Dosage: 8.6-50MG, 2 TABLETS
     Route: 048
     Dates: start: 20121213
  26. FILGRASTIM [Concomitant]
     Indication: PRODUCT USED FOR UNKNOWN INDICATION
     Dosage: 480 MICROGRAM
     Route: 058
  27. ENOXAPARIN [Concomitant]
     Indication: PRODUCT USED FOR UNKNOWN INDICATION
     Dosage: 100 MILLIGRAM
     Route: 058
     Dates: start: 20110711
  28. ENOXAPARIN [Concomitant]
     Dosage: 30 OR 40MG
     Route: 058
     Dates: start: 20121206
  29. SALINE FLUSH [Concomitant]
     Indication: PRODUCT USED FOR UNKNOWN INDICATION
     Route: 041
  30. ALUMINIUM-MAGNESIUM HYDROXIDE-SIMETHICONE [Concomitant]
     Indication: DYSPEPSIA
     Route: 065
  31. IOHEXOL [Concomitant]
     Indication: PRODUCT USED FOR UNKNOWN INDICATION
     Dosage: 100 MILLILITER
     Route: 041
     Dates: start: 20121208
  32. LIDOCAINE [Concomitant]
     Indication: PAIN
     Dosage: 2.5 PERCENT
     Route: 061
     Dates: start: 20110711
  33. LIDOCAINE [Concomitant]
     Route: 061
     Dates: start: 20121207
  34. LIDOCAINE [Concomitant]
     Dosage: 2.5 PERCENT
     Route: 061
     Dates: start: 20121010
  35. PROMETHAZINE [Concomitant]
     Indication: NAUSEA
     Dosage: 12.5 MILLIGRAM
     Route: 048
     Dates: start: 20121207
  36. PROMETHAZINE [Concomitant]
     Indication: VOMITING
     Route: 048
  37. MORPHINE [Concomitant]
     Indication: PAIN
     Dosage: 120 MILLIGRAM
     Route: 048
     Dates: start: 20060815
  38. MORPHINE [Concomitant]
     Dosage: 60 MILLIGRAM
     Route: 048
     Dates: start: 20060822
  39. MORPHINE [Concomitant]
     Dosage: 15 MILLIGRAM
     Route: 048
     Dates: start: 20070313
  40. MORPHINE [Concomitant]
     Dosage: 15 MILLIGRAM
     Route: 048
     Dates: start: 20070323
  41. MORPHINE [Concomitant]
     Dosage: 15 MILLIGRAM
     Route: 048
     Dates: start: 20070424
  42. MORPHINE [Concomitant]
     Dosage: 90 MILLIGRAM
     Route: 048
     Dates: start: 20071105
  43. MORPHINE [Concomitant]
     Dosage: 240 MILLIGRAM
     Route: 048
     Dates: start: 20121207, end: 20121207
  44. MORPHINE [Concomitant]
     Dosage: 2-4MG
     Route: 041
     Dates: start: 20121207, end: 20121217
  45. POTASSIUM CHLORIDE [Concomitant]
     Indication: PRODUCT USED FOR UNKNOWN INDICATION
     Dosage: 20 MILLIEQUIVALENTS
     Route: 048
     Dates: start: 20121207
  46. POTASSIUM CHLORIDE [Concomitant]
     Dosage: 40 MILLIEQUIVALENTS
     Route: 048
     Dates: start: 20121207
  47. POTASSIUM CHLORIDE [Concomitant]
     Dosage: 20 MILLIEQUIVALENTS
     Route: 041
     Dates: start: 20121212, end: 20121212
  48. FENTANYL [Concomitant]
     Indication: PRODUCT USED FOR UNKNOWN INDICATION
     Dosage: 50 MILLIGRAM
     Route: 041
     Dates: start: 20121210, end: 20121210
  49. HEPARIN LOCK FLUSH [Concomitant]
     Indication: PRODUCT USED FOR UNKNOWN INDICATION
     Dosage: 100 UNIT/ML
     Route: 041
     Dates: start: 20121213
  50. MIDAZOLAM [Concomitant]
     Indication: PRODUCT USED FOR UNKNOWN INDICATION
     Dosage: 1 MILLIGRAM
     Route: 041
     Dates: start: 20121210, end: 20121210
  51. PANTOPRAZOLE [Concomitant]
     Indication: PRODUCT USED FOR UNKNOWN INDICATION
     Dosage: 40 MILLIGRAM
     Route: 048
     Dates: start: 20110711
  52. PANTOPRAZOLE [Concomitant]
     Dosage: 40 MILLIGRAM
     Route: 048
     Dates: start: 20121208, end: 20121208
  53. MULTIVITAMINS [Concomitant]
     Indication: PRODUCT USED FOR UNKNOWN INDICATION
     Dosage: 1 TABLET
     Route: 048
     Dates: start: 20060714
  54. MULTIVITAMINS [Concomitant]
     Dosage: 1 TABLET
     Route: 048
     Dates: start: 20060721
  55. MULTIVITAMINS [Concomitant]
     Dosage: 1 TABLET
     Route: 048
     Dates: start: 20060815
  56. MULTIVITAMINS [Concomitant]
     Dosage: 1 TABLET
     Route: 048
     Dates: start: 20060822
  57. MULTIVITAMINS [Concomitant]
     Dosage: 1 TABLET
     Route: 048
     Dates: start: 20070309
  58. MULTIVITAMINS [Concomitant]
     Dosage: 1 TABLET
     Route: 048
     Dates: start: 20070323
  59. MULTIVITAMINS [Concomitant]
     Dosage: 1 TABLET
     Route: 048
     Dates: start: 20070329
  60. MULTIVITAMINS [Concomitant]
     Dosage: 1 TABLET
     Route: 048
     Dates: start: 20070424
  61. MULTIVITAMINS [Concomitant]
     Dosage: 1 TABLET
     Route: 048
     Dates: start: 20070531
  62. MULTIVITAMINS [Concomitant]
     Dosage: 1 TABLET
     Route: 048
     Dates: start: 20070827
  63. MULTIVITAMINS [Concomitant]
     Dosage: 1 TABLET
     Route: 048
     Dates: start: 20071105
  64. MULTIVITAMINS [Concomitant]
     Dosage: 1 TABLET
     Route: 048
     Dates: start: 20110711
  65. ROBAXIN [Concomitant]
     Indication: PRODUCT USED FOR UNKNOWN INDICATION
     Dosage: 1500 MILLIGRAM
     Route: 048
     Dates: start: 20060815
  66. ROBAXIN [Concomitant]
     Dosage: 1500 MILLIGRAM
     Route: 048
     Dates: start: 20060822
  67. COMPAZINE [Concomitant]
     Indication: NAUSEA
     Dosage: 10 MILLIGRAM
     Route: 048
     Dates: start: 20060815
  68. COMPAZINE [Concomitant]
     Dosage: 10 MILLIGRAM
     Route: 048
     Dates: start: 20060822
  69. CELEBREX [Concomitant]
     Indication: PRODUCT USED FOR UNKNOWN INDICATION
     Dosage: 200 MILLIGRAM
     Route: 048
     Dates: start: 20060815
  70. CELEBREX [Concomitant]
     Dosage: 200 MILLIGRAM
     Route: 048
     Dates: start: 20060822
  71. BUSPAR [Concomitant]
     Indication: PRODUCT USED FOR UNKNOWN INDICATION
     Dosage: 5 MILLIGRAM
     Route: 048
     Dates: start: 20060815
  72. BUSPAR [Concomitant]
     Dosage: 5 MILLIGRAM
     Route: 048
     Dates: start: 20060822
  73. BUSPAR [Concomitant]
     Dosage: 20 MILLIGRAM
     Route: 048
     Dates: start: 20070309
  74. BUSPAR [Concomitant]
     Dosage: 20 MILLIGRAM
     Route: 048
     Dates: start: 20070323
  75. BUSPAR [Concomitant]
     Dosage: 20 MILLIGRAM
     Route: 048
     Dates: start: 20070329
  76. BUSPAR [Concomitant]
     Dosage: 20 MILLIGRAM
     Route: 048
     Dates: start: 20070424
  77. ACIPHEX [Concomitant]
     Indication: PRODUCT USED FOR UNKNOWN INDICATION
     Dosage: 20 MILLIGRAM
     Route: 048
     Dates: start: 20060714
  78. ACIPHEX [Concomitant]
     Dosage: 20 MILLIGRAM
     Route: 048
     Dates: start: 20060721
  79. ACIPHEX [Concomitant]
     Dosage: 20 MILLIGRAM
     Route: 048
     Dates: start: 20060815
  80. ACIPHEX [Concomitant]
     Dosage: 20 MILLIGRAM
     Route: 048
     Dates: start: 20060822
  81. ACIPHEX [Concomitant]
     Dosage: 1 TABLET
     Route: 048
     Dates: start: 20070309
  82. ACIPHEX [Concomitant]
     Dosage: 1 TABLET
     Route: 048
     Dates: start: 20070323
  83. ACIPHEX [Concomitant]
     Dosage: 1 TABLET
     Route: 048
     Dates: start: 20070329
  84. ACIPHEX [Concomitant]
     Dosage: 1 TABLET
     Route: 048
     Dates: start: 20070424
  85. ENULOSE [Concomitant]
     Indication: PRODUCT USED FOR UNKNOWN INDICATION
     Dosage: 10G/15ML
     Route: 048
     Dates: start: 20060811
  86. ENULOSE [Concomitant]
     Dosage: 10G/15ML
     Route: 048
     Dates: start: 20060815
  87. ENULOSE [Concomitant]
     Dosage: 10G/15ML
     Route: 048
     Dates: start: 20060822
  88. CALTRATE 600 [Concomitant]
     Indication: PRODUCT USED FOR UNKNOWN INDICATION
     Dosage: 3 GRAM
     Route: 048
     Dates: start: 20070309
  89. CALTRATE 600 [Concomitant]
     Dosage: 3 GRAM
     Route: 048
     Dates: start: 20070323
  90. CALTRATE 600 [Concomitant]
     Dosage: 3 GRAM
     Route: 048
     Dates: start: 20070329
  91. CALTRATE 600 [Concomitant]
     Dosage: 3 GRAM
     Route: 048
     Dates: start: 20070424
  92. CALTRATE 600 [Concomitant]
     Dosage: 3 GRAM
     Route: 048
     Dates: start: 20070531
  93. CALTRATE 600 [Concomitant]
     Dosage: 3 GRAM
     Route: 048
     Dates: start: 20070827
  94. CALTRATE 600 [Concomitant]
     Dosage: 3 GRAM
     Route: 048
     Dates: start: 20071105
  95. VICODIN [Concomitant]
     Indication: PAIN
     Dosage: 5MG-500MG
     Route: 048
     Dates: start: 20070309
  96. VICODIN [Concomitant]
     Dosage: 5MG-500MG
     Route: 048
     Dates: start: 20070323
  97. VICODIN [Concomitant]
     Dosage: 5MG-500MG
     Route: 048
     Dates: start: 20070329
  98. VICODIN [Concomitant]
     Dosage: 5MG-500MG
     Route: 048
     Dates: start: 20070424
  99. VICODIN [Concomitant]
     Dosage: 5MG-500MG
     Route: 048
     Dates: start: 20070531
  100. VICODIN [Concomitant]
     Dosage: 5MG-500MG
     Route: 048
     Dates: start: 20070827
  101. VICODIN [Concomitant]
     Dosage: 5MG-500MG
     Route: 048
     Dates: start: 20071105
  102. VICODIN [Concomitant]
     Dosage: 6MG-500MG
     Route: 048
     Dates: start: 20110711
  103. VICODIN [Concomitant]
     Dosage: 6MG-500MG
     Route: 048
     Dates: start: 20121010
  104. REGLAN [Concomitant]
     Indication: PRODUCT USED FOR UNKNOWN INDICATION
     Dosage: 40 MILLIGRAM
     Route: 048
     Dates: start: 20070309
  105. REGLAN [Concomitant]
     Dosage: 40 MILLIGRAM
     Route: 048
     Dates: start: 20070323
  106. REGLAN [Concomitant]
     Dosage: 30 MILLIGRAM
     Route: 048
     Dates: start: 20070329
  107. REGLAN [Concomitant]
     Dosage: 30 MILLIGRAM
     Route: 048
     Dates: start: 20070424
  108. ALEVE [Concomitant]
     Indication: PRODUCT USED FOR UNKNOWN INDICATION
     Dosage: 220 MILLIGRAM
     Route: 048
     Dates: start: 20110711
  109. PREDNISONE [Concomitant]
     Indication: PRODUCT USED FOR UNKNOWN INDICATION
     Dosage: 100 MILLIGRAM
     Route: 048
     Dates: start: 20110711
  110. MELPHALAN [Concomitant]
     Indication: PRODUCT USED FOR UNKNOWN INDICATION
     Dosage: 14 MILLIGRAM
     Route: 048
     Dates: start: 20110711
  111. ACYCLOVIR [Concomitant]
     Indication: PRODUCT USED FOR UNKNOWN INDICATION
     Dosage: 800 MILLIGRAM
     Route: 048
     Dates: start: 20110711
  112. ACYCLOVIR [Concomitant]
     Dosage: 800 MILLIGRAM
     Route: 048
     Dates: start: 20121010
  113. MUCINEX [Concomitant]
     Indication: SINUS CONGESTION
     Dosage: 1200 MILLIGRAM
     Route: 048
     Dates: start: 20110711
  114. MUCINEX [Concomitant]
     Dosage: 1200 MILLIGRAM
     Route: 048
     Dates: start: 20121010
  115. VALIUM [Concomitant]
     Indication: ANXIETY
     Dosage: 5 MILLIGRAM
     Route: 048
     Dates: start: 20121010
  116. CC-4047 [Suspect]
     Indication: PLASMA CELL MYELOMA
     Dosage: 4 MILLIGRAM
     Route: 048
     Dates: start: 20121106, end: 20121119
  117. CC-4047 [Suspect]
     Dosage: 4 MILLIGRAM
     Route: 048
     Dates: start: 20121127, end: 20121210
  118. DEXAMETHASONE [Suspect]
     Indication: PLASMA CELL MYELOMA
     Dosage: 20 MILLIGRAM
     Route: 048
     Dates: start: 20121106, end: 20121116
  119. DEXAMETHASONE [Suspect]
     Dosage: 20 MILLIGRAM
     Route: 048
     Dates: start: 20121127, end: 20121207
  120. DEXAMETHASONE [Suspect]
     Dosage: 8 MILLIGRAM
     Route: 041
     Dates: start: 20121212
  121. BORTEZOMIB [Suspect]
     Indication: PLASMA CELL MYELOMA
     Dosage: 1.3 MILLIGRAM/SQ. METER
     Route: 041
     Dates: start: 20121106, end: 20121113
  122. BORTEZOMIB [Suspect]
     Dosage: 1.3 MILLIGRAM/SQ. METER
     Route: 041
     Dates: start: 20121127, end: 20121207
  123. REVLIMID [Suspect]
     Indication: PLASMA CELL MYELOMA
     Dosage: 25 MILLIGRAM
     Route: 048
     Dates: start: 200607, end: 200705
  124. REVLIMID [Suspect]
     Dosage: 25 MILLIGRAM
     Route: 048
     Dates: start: 201106, end: 20121004
  125. WARFARIN [Concomitant]
     Indication: PRODUCT USED FOR UNKNOWN INDICATION
     Dosage: 5 MILLIGRAM
     Route: 048
     Dates: start: 20110711
  126. WARFARIN [Concomitant]
     Dosage: 5 MILLIGRAM
     Route: 048
     Dates: start: 20121010
  127. WARFARIN [Concomitant]
     Dosage: 5 MILLIGRAM
     Route: 048
     Dates: start: 20121012
  128. ZOLPIDEM [Concomitant]
     Indication: INSOMNIA
     Dosage: 5 MILLIGRAM
     Route: 048
  129. ZOLPIDEM [Concomitant]
     Dosage: 5 MILLIGRAM
     Route: 048
     Dates: start: 20110711
  130. ZOLPIDEM [Concomitant]
     Dosage: 5 MILLIGRAM
     Route: 048
     Dates: start: 20121010
  131. EPOPROSTENOL SODIUM [Concomitant]
     Indication: PRODUCT USED FOR UNKNOWN INDICATION
     Route: 041
  132. ONDANSETRON [Concomitant]
     Indication: NAUSEA
     Dosage: 24 MILLIGRAM
     Route: 048
  133. ONDANSETRON [Concomitant]
     Indication: VOMITING
     Dosage: 8 MILLIGRAM
     Route: 048
     Dates: start: 20110711
  134. ONDANSETRON [Concomitant]
     Dosage: 8 MILLIGRAM
     Route: 048
     Dates: start: 20120924
  135. ONDANSETRON [Concomitant]
     Dosage: 8 MILLIGRAM
     Route: 048
     Dates: start: 20121010
  136. LOMOTIL [Concomitant]
     Indication: DIARRHOEA
     Dosage: 2.5-0.025MG
     Route: 048
     Dates: start: 20110711
  137. LOMOTIL [Concomitant]
     Dosage: 2.5-0.025MG
     Route: 048
     Dates: start: 20121010

REACTIONS (1)
  - Pancreatic carcinoma metastatic [Not Recovered/Not Resolved]
